FAERS Safety Report 15406255 (Version 2)
Quarter: 2018Q4

REPORT INFORMATION
  Report Type: Report from Study
  Country: US (occurrence: US)
  Receive Date: 20180920
  Receipt Date: 20181017
  Transmission Date: 20190204
  Serious: No
  Sender: FDA-Public Use
  Company Number: PHHY2018US102413

PATIENT
  Sex: Female

DRUGS (1)
  1. GILENYA [Suspect]
     Active Substance: FINGOLIMOD HYDROCHLORIDE
     Indication: MULTIPLE SCLEROSIS
     Dosage: 0.5 MG, QD
     Route: 048
     Dates: start: 20180329, end: 20180912

REACTIONS (6)
  - Abdominal discomfort [Unknown]
  - Blood pressure increased [Unknown]
  - Dizziness [Recovering/Resolving]
  - Obstructive airways disorder [Unknown]
  - White blood cell count decreased [Unknown]
  - Fatigue [Unknown]
